FAERS Safety Report 9467465 (Version 2)
Quarter: 2013Q3

REPORT INFORMATION
  Report Type: Spontaneous
  Country: AE (occurrence: AE)
  Receive Date: 20130821
  Receipt Date: 20130910
  Transmission Date: 20140515
  Serious: Yes (Hospitalization)
  Sender: FDA-Public Use
  Company Number: PHHY2013AE089964

PATIENT
  Age: 7 Year
  Sex: Female

DRUGS (3)
  1. EXJADE [Suspect]
     Indication: THALASSAEMIA BETA
     Dosage: 35 MG/KG, PER DAY
     Route: 048
     Dates: start: 2009
  2. EXJADE [Suspect]
     Dosage: UNK (GRADUAL DOSE INCREASE)
     Route: 048
     Dates: start: 2009
  3. FOLIC ACID [Concomitant]
     Dosage: 2 MG, UNK
     Route: 048

REACTIONS (8)
  - Pancreatitis acute [Recovering/Resolving]
  - Amylase increased [Recovering/Resolving]
  - Lipase increased [Recovering/Resolving]
  - Abdominal pain upper [Recovering/Resolving]
  - Vomiting [Recovering/Resolving]
  - Abdominal tenderness [Unknown]
  - Nausea [Unknown]
  - Pyrexia [Unknown]
